FAERS Safety Report 4837344-5 (Version None)
Quarter: 2005Q4

REPORT INFORMATION
  Report Type: 
  Country: None (occurrence: None)
  Receive Date: 20051128
  Receipt Date: 20051117
  Transmission Date: 20060501
  Serious: Yes (Other)
  Sender: FDA-Public Use
  Company Number: DE-JNJFOC-20051104299

PATIENT
  Age: 51 Year
  Sex: Male
  Weight: 72 kg

DRUGS (1)
  1. REMICADE [Suspect]
     Indication: PSORIASIS
     Dosage: 3RD INFUSION
     Route: 042

REACTIONS (6)
  - ARTHRALGIA [None]
  - ASTHENIA [None]
  - DISORIENTATION [None]
  - ERYTHEMA [None]
  - PARAESTHESIA [None]
  - PYREXIA [None]
